FAERS Safety Report 5386184-X (Version None)
Quarter: 2007Q3

REPORT INFORMATION
  Report Type: 
  Country: None (occurrence: None)
  Receive Date: 20070713
  Receipt Date: 20070705
  Transmission Date: 20080115
  Serious: Yes (Other)
  Sender: FDA-Public Use
  Company Number: HQWYE924206JUL07

PATIENT
  Age: 22 Year
  Sex: Female
  Weight: 68.1 kg

DRUGS (2)
  1. ADVIL PM [Suspect]
     Indication: INSOMNIA
     Dosage: 2 CAPLETS DAILY AT BEDTIME
     Route: 048
     Dates: start: 20070601
  2. ADVIL PM [Suspect]
     Dosage: 2 CAPLETS AT BEDTIME AS NEEDED
     Route: 048

REACTIONS (1)
  - DRUG DEPENDENCE [None]
